FAERS Safety Report 21021386 (Version 1)
Quarter: 2022Q2

REPORT INFORMATION
  Report Type: Spontaneous
  Country: CH (occurrence: CH)
  Receive Date: 20220629
  Receipt Date: 20220629
  Transmission Date: 20220720
  Serious: Yes (Hospitalization, Other)
  Sender: FDA-Public Use
  Company Number: CH-MACLEODS PHARMACEUTICALS US LTD-MAC2022036244

PATIENT

DRUGS (4)
  1. ARIPIPRAZOLE [Suspect]
     Active Substance: ARIPIPRAZOLE
     Indication: Schizophrenia
     Dosage: 10 MILLIGRAM, QD
     Route: 065
  2. ARIPIPRAZOLE [Suspect]
     Active Substance: ARIPIPRAZOLE
     Dosage: 25 MILLIGRAM, QD
     Route: 065
  3. CLORAZEPATE DIPOTASSIUM [Concomitant]
     Active Substance: CLORAZEPATE DIPOTASSIUM
     Indication: Schizophrenia
     Dosage: 5 MILLIGRAM, TID
     Route: 065
  4. SERTRALINE [Concomitant]
     Active Substance: SERTRALINE HYDROCHLORIDE
     Indication: Depressive symptom
     Dosage: 50 MILLIGRAM, QD
     Route: 065

REACTIONS (2)
  - Contusion [Unknown]
  - Suicide attempt [Unknown]
